FAERS Safety Report 13162530 (Version 1)
Quarter: 2017Q1

REPORT INFORMATION
  Report Type: Spontaneous
  Country: US (occurrence: US)
  Receive Date: 20170125
  Receipt Date: 20170125
  Transmission Date: 20170428
  Serious: No
  Sender: FDA-Public Use
  Company Number: None

PATIENT
  Age: 55 Year
  Sex: Male
  Weight: 85.5 kg

DRUGS (3)
  1. LOSARTAN 100 MG [Suspect]
     Active Substance: LOSARTAN
     Indication: HYPERTENSION
     Dosage: ?          QUANTITY:90 TABLET(S);?
     Route: 048
     Dates: start: 20170117, end: 20170125
  2. SLEEP THERAPY (CPAP) MACHINE [Concomitant]
  3. PRILOSEC [Concomitant]
     Active Substance: OMEPRAZOLE MAGNESIUM

REACTIONS (2)
  - Blood pressure increased [None]
  - Product substitution issue [None]

NARRATIVE: CASE EVENT DATE: 20170125
